FAERS Safety Report 4993170-8 (Version None)
Quarter: 2006Q1

REPORT INFORMATION
  Report Type: 
  Country: None (occurrence: None)
  Receive Date: 20060313
  Receipt Date: 20051121
  Transmission Date: 20060701
  Serious: No
  Sender: FDA-Public Use
  Company Number: 2005-BP-18128BP

PATIENT
  Age: 72 Year
  Sex: Female

DRUGS (4)
  1. SPIRIVA [Suspect]
     Indication: ASTHMA
     Dosage: 18 MCG (18 MCG),IH
     Dates: start: 20050301
  2. SPIRIVA [Suspect]
  3. SYNTHROID [Concomitant]
  4. ADVAIR (SERETIDE) [Concomitant]

REACTIONS (1)
  - DYSGEUSIA [None]
